FAERS Safety Report 12820940 (Version 3)
Quarter: 2016Q4

REPORT INFORMATION
  Report Type: Spontaneous
  Country: US (occurrence: US)
  Receive Date: 20161006
  Receipt Date: 20161202
  Transmission Date: 20170207
  Serious: Yes (Death, Other)
  Sender: FDA-Public Use
  Company Number: PHEH2016US025640

PATIENT
  Age: 51 Year
  Sex: Female

DRUGS (1)
  1. VOTRIENT [Suspect]
     Active Substance: PAZOPANIB HYDROCHLORIDE
     Indication: PRODUCT USED FOR UNKNOWN INDICATION
     Dosage: 400 MG, BID
     Route: 048
     Dates: start: 20160802, end: 20160819

REACTIONS (4)
  - Pain [Fatal]
  - Cellulitis [Unknown]
  - Enterocutaneous fistula [Fatal]
  - Fistula [Fatal]

NARRATIVE: CASE EVENT DATE: 20160909
